FAERS Safety Report 15346310 (Version 2)
Quarter: 2025Q3

REPORT INFORMATION
  Report Type: Spontaneous
  Country: GB (occurrence: GB)
  Receive Date: 20180904
  Receipt Date: 20250718
  Transmission Date: 20251020
  Serious: Yes (Other)
  Sender: AUROBINDO
  Company Number: GB-AUROBINDO-AUR-APL-2018-044134

PATIENT
  Age: 45 Year
  Sex: Male

DRUGS (4)
  1. OLANZAPINE [Suspect]
     Active Substance: OLANZAPINE
     Indication: Schizophrenia
     Dosage: 20 MILLIGRAM, ONCE A DAY
     Route: 048
  2. ZUCLOPENTHIXOL [Suspect]
     Active Substance: ZUCLOPENTHIXOL
     Indication: Schizophrenia
     Dosage: 600 MILLIGRAM, EVERY WEEK
     Route: 048
  3. ZUCLOPENTHIXOL [Suspect]
     Active Substance: ZUCLOPENTHIXOL
     Indication: Aggression
  4. LEVOTHYROXINE [Concomitant]
     Active Substance: LEVOTHYROXINE
     Indication: Hypothyroidism
     Dosage: 150 MICROGRAM, ONCE A DAY
     Route: 065

REACTIONS (6)
  - Arrhythmia [Unknown]
  - Type 2 diabetes mellitus [Unknown]
  - Electrocardiogram QT prolonged [Unknown]
  - Headache [Unknown]
  - Gynaecomastia [Unknown]
  - Neuropathy peripheral [Unknown]
